FAERS Safety Report 16667898 (Version 5)
Quarter: 2020Q2

REPORT INFORMATION
  Report Type: Spontaneous
  Country: US (occurrence: US)
  Receive Date: 20190805
  Receipt Date: 20200602
  Transmission Date: 20200713
  Serious: Yes (Other)
  Sender: FDA-Public Use
  Company Number: US-GILEAD-2019-0421736

PATIENT
  Age: 34 Year
  Sex: Male
  Weight: 85 kg

DRUGS (29)
  1. ULTRAM [Concomitant]
     Active Substance: TRAMADOL HYDROCHLORIDE
  2. ALDARA [Concomitant]
     Active Substance: IMIQUIMOD
  3. CELEBREX [Concomitant]
     Active Substance: CELECOXIB
  4. VIREAD [Suspect]
     Active Substance: TENOFOVIR DISOPROXIL FUMARATE
     Indication: HIV INFECTION
     Dosage: 300 MG, QD
     Route: 048
     Dates: start: 200707, end: 201706
  5. KALETRA [Concomitant]
     Active Substance: LOPINAVIR\RITONAVIR
     Dosage: UNK
     Dates: start: 201001
  6. AUGMENTIN [Concomitant]
     Active Substance: AMOXICILLIN\CLAVULANATE POTASSIUM
  7. TESSALON [Concomitant]
     Active Substance: BENZONATATE
  8. DRISDOL [Concomitant]
     Active Substance: ERGOCALCIFEROL
  9. BIKTARVY [Concomitant]
     Active Substance: BICTEGRAVIR SODIUM\EMTRICITABINE\TENOFOVIR ALAFENAMIDE FUMARATE
  10. ISENTRESS [Concomitant]
     Active Substance: RALTEGRAVIR POTASSIUM
     Dosage: UNK
     Dates: start: 200912
  11. SENNA PLUS [DOCUSATE SODIUM;SENNOSIDE A+B] [Concomitant]
  12. VALTREX [Concomitant]
     Active Substance: VALACYCLOVIR HYDROCHLORIDE
  13. ASPIRIN [ACETYLSALICYLIC ACID] [Concomitant]
     Active Substance: ASPIRIN
  14. PRILOSEC [Concomitant]
     Active Substance: OMEPRAZOLE MAGNESIUM
  15. INTELENCE [Concomitant]
     Active Substance: ETRAVIRINE
     Dosage: UNK
     Dates: start: 200912
  16. TIVICAY [Concomitant]
     Active Substance: DOLUTEGRAVIR SODIUM
  17. ZOVIRAX [Concomitant]
     Active Substance: ACYCLOVIR
  18. AMOXICILLIN. [Concomitant]
     Active Substance: AMOXICILLIN
  19. DESCOVY [Concomitant]
     Active Substance: EMTRICITABINE\TENOFOVIR ALAFENAMIDE FUMARATE
  20. EPZICOM [Concomitant]
     Active Substance: ABACAVIR SULFATE\LAMIVUDINE
  21. PREZCOBIX [Concomitant]
     Active Substance: COBICISTAT\DARUNAVIR ETHANOLATE
  22. SULFAMETHOXAZOLE;TRIMETHOPRIM [Concomitant]
     Active Substance: SULFAMETHOXAZOLE\TRIMETHOPRIM
  23. TYLENOL [Concomitant]
     Active Substance: ACETAMINOPHEN
  24. DICLOXACILLIN [Concomitant]
     Active Substance: DICLOXACILLIN
  25. OXYCODONE [Concomitant]
     Active Substance: OXYCODONE
  26. NEXIUM [Concomitant]
     Active Substance: ESOMEPRAZOLE MAGNESIUM
  27. DIFLUCAN [Concomitant]
     Active Substance: FLUCONAZOLE
  28. HEPARIN [Concomitant]
     Active Substance: HEPARIN SODIUM
  29. DESYREL [Concomitant]
     Active Substance: TRAZODONE HYDROCHLORIDE

REACTIONS (11)
  - Bone density decreased [Unknown]
  - Intentional product use issue [Unknown]
  - Anhedonia [Unknown]
  - Economic problem [Unknown]
  - Anxiety [Unknown]
  - Product use issue [Recovered/Resolved]
  - Osteonecrosis [Not Recovered/Not Resolved]
  - Bone loss [Unknown]
  - Intentional dose omission [Recovered/Resolved]
  - Emotional distress [Unknown]
  - Pain [Unknown]

NARRATIVE: CASE EVENT DATE: 200709
